FAERS Safety Report 8307490-2 (Version None)
Quarter: 2012Q2

REPORT INFORMATION
  Report Type: 
  Country: None (occurrence: None)
  Receive Date: 20120424
  Receipt Date: 20120420
  Transmission Date: 20120825
  Serious: Yes (Other)
  Sender: FDA-Public Use
  Company Number: US-PFIZER INC-2012098509

PATIENT
  Sex: Male
  Weight: 109 kg

DRUGS (6)
  1. ZOLOFT [Suspect]
     Indication: POST-TRAUMATIC STRESS DISORDER
  2. ZOLOFT [Suspect]
     Indication: HEAD INJURY
     Dosage: 100 MG DAILY BY CUTTING IN HALF
     Route: 048
     Dates: start: 19980101, end: 20100601
  3. LIPITOR [Concomitant]
     Indication: CORONARY ARTERY OCCLUSION
     Dosage: UNK, DAILY
     Dates: start: 20090901
  4. LIPITOR [Concomitant]
     Dosage: 80 MG TABLET DAILY BY CUTTING IN HALF
  5. PLAVIX [Concomitant]
     Indication: CORONARY ARTERY OCCLUSION
     Dosage: UNK
  6. ATENOLOL [Concomitant]
     Indication: BLOOD PRESSURE ABNORMAL
     Dosage: UNK

REACTIONS (6)
  - ANGER [None]
  - IRRITABILITY [None]
  - CONFUSIONAL STATE [None]
  - CORONARY ARTERY OCCLUSION [None]
  - MENTAL IMPAIRMENT [None]
  - ANXIETY [None]
